FAERS Safety Report 16275584 (Version 1)
Quarter: 2019Q2

REPORT INFORMATION
  Report Type: Spontaneous
  Country: US (occurrence: US)
  Receive Date: 20190503
  Receipt Date: 20190503
  Transmission Date: 20190711
  Serious: Yes (Hospitalization)
  Sender: FDA-Public Use
  Company Number: None

PATIENT
  Age: 27 Year
  Sex: Female

DRUGS (6)
  1. PULMOZYME [Concomitant]
     Active Substance: DORNASE ALFA
  2. VANCOMYCIN [Concomitant]
     Active Substance: VANCOMYCIN
  3. TOBRAMYCIN. [Concomitant]
     Active Substance: TOBRAMYCIN
  4. SOD CHL [Suspect]
     Active Substance: SODIUM CHLORIDE
     Indication: INFECTIVE PULMONARY EXACERBATION OF CYSTIC FIBROSIS
     Dosage: ?          OTHER FREQUENCY:EVERY OTHER MONTH;OTHER ROUTE:INHALED?
     Route: 055
     Dates: start: 20180327
  5. SYMDEKO [Concomitant]
     Active Substance: IVACAFTOR\TEZACAFTOR
  6. COLISTIMETHATE [Suspect]
     Active Substance: COLISTIMETHATE SODIUM
     Indication: INFECTIVE PULMONARY EXACERBATION OF CYSTIC FIBROSIS
     Dosage: ?          OTHER FREQUENCY:BID E/O MONTH;OTHER ROUTE:INHALE?
     Route: 055

REACTIONS (1)
  - Hospitalisation [None]

NARRATIVE: CASE EVENT DATE: 20190502
